FAERS Safety Report 5177878-X (Version None)
Quarter: 2006Q4

REPORT INFORMATION
  Report Type: 
  Country: None (occurrence: None)
  Receive Date: 20061208
  Receipt Date: 20061127
  Transmission Date: 20070319
  Serious: Yes (Hospitalization, Other)
  Sender: FDA-Public Use
  Company Number: 2006147800

PATIENT
  Age: 59 Year
  Sex: Male

DRUGS (3)
  1. ESTRACYT (ESTRAMUSTINE PHOSPHATE SODIUM) [Suspect]
     Indication: PROSTATE CANCER
     Dosage: 560 MG, ORAL
     Route: 048
     Dates: start: 20061004, end: 20061113
  2. LEUPROLIDE ACETATE [Suspect]
     Indication: PROSTATE CANCER
     Dosage: 3.75 MG, SUBCUTANEOUS
     Route: 058
     Dates: start: 20061007, end: 20061007
  3. TAMSULOSIN HCL [Suspect]
     Dosage: 1 TABELT, ORAL
     Route: 048
     Dates: start: 20061104, end: 20061113

REACTIONS (1)
  - LIVER DISORDER [None]
